FAERS Safety Report 16023991 (Version 1)
Quarter: 2019Q1

REPORT INFORMATION
  Report Type: Spontaneous
  Country: FR (occurrence: FR)
  Receive Date: 20190301
  Receipt Date: 20190301
  Transmission Date: 20190418
  Serious: Yes (Other)
  Sender: FDA-Public Use
  Company Number: FR-GLAXOSMITHKLINE-FR2019GSK035070

PATIENT
  Age: 69 Year
  Sex: Female

DRUGS (1)
  1. AVAMYS [Suspect]
     Active Substance: FLUTICASONE FUROATE
     Indication: NONINFECTIVE MYRINGITIS
     Dosage: 110 UG, 1D (TWO ACCUATIONS IN EACH NOSTRILS OF 27.5 MICROGRAM)
     Route: 045
     Dates: start: 201901

REACTIONS (3)
  - Thrombosis [Not Recovered/Not Resolved]
  - Product use in unapproved indication [Unknown]
  - Product prescribing issue [Unknown]

NARRATIVE: CASE EVENT DATE: 201901
